FAERS Safety Report 25617819 (Version 1)
Quarter: 2025Q3

REPORT INFORMATION
  Report Type: Spontaneous
  Country: US (occurrence: None)
  Receive Date: 20250729
  Receipt Date: 20250729
  Transmission Date: 20251021
  Serious: Yes (Hospitalization, Other)
  Sender: FDA-CTU
  Company Number: None

PATIENT
  Age: 55 Year
  Sex: Female
  Weight: 82.62 kg

DRUGS (1)
  1. GAMUNEX-C [Suspect]
     Active Substance: HUMAN IMMUNOGLOBULIN G
     Route: 042

REACTIONS (9)
  - Infusion related reaction [None]
  - Restlessness [None]
  - Chest discomfort [None]
  - Throat tightness [None]
  - Dyspnoea [None]
  - Speech disorder [None]
  - Pruritus [None]
  - Pruritus [None]
  - Ear pruritus [None]

NARRATIVE: CASE EVENT DATE: 20250724
